FAERS Safety Report 7589905-0 (Version None)
Quarter: 2011Q3

REPORT INFORMATION
  Report Type: 
  Country: None (occurrence: None)
  Receive Date: 20110705
  Receipt Date: 20110628
  Transmission Date: 20111222
  Serious: Yes (Other)
  Sender: FDA-Public Use
  Company Number: US-PFIZER INC-2011145233

PATIENT
  Sex: Female

DRUGS (1)
  1. SUTENT [Suspect]
     Indication: RENAL CANCER
     Dosage: 50 MG, CYCLIC, FOR 4 WEEKS ON, 2 WEEKS  HOLD
     Route: 048
     Dates: start: 20110602, end: 20110613

REACTIONS (2)
  - CEREBROVASCULAR ACCIDENT [None]
  - BLINDNESS [None]
